FAERS Safety Report 22594493 (Version 1)
Quarter: 2023Q2

REPORT INFORMATION
  Report Type: Spontaneous
  Country: AU (occurrence: AU)
  Receive Date: 20230613
  Receipt Date: 20230613
  Transmission Date: 20230721
  Serious: Yes (Hospitalization, Other)
  Sender: FDA-Public Use
  Company Number: AU-TASMAN PHARMA, INC.-2023TSM00111

PATIENT
  Age: 56 Year
  Sex: Male

DRUGS (72)
  1. CLOZAPINE [Suspect]
     Active Substance: CLOZAPINE
     Dosage: 50 MG
     Route: 048
     Dates: start: 20110401, end: 20110407
  2. CLOZAPINE [Suspect]
     Active Substance: CLOZAPINE
     Dosage: 350 MG
     Dates: start: 20110408, end: 20110411
  3. CLOZAPINE [Suspect]
     Active Substance: CLOZAPINE
     Dosage: 400 MG
     Dates: start: 20110412, end: 20110418
  4. CLOZAPINE [Suspect]
     Active Substance: CLOZAPINE
     Dosage: 500 MG
     Dates: start: 20110419, end: 20110426
  5. CLOZAPINE [Suspect]
     Active Substance: CLOZAPINE
     Dosage: 650 MG
     Dates: start: 20110427, end: 20110503
  6. CLOZAPINE [Suspect]
     Active Substance: CLOZAPINE
     Dosage: 750 MG
     Dates: start: 20110504, end: 20110601
  7. CLOZAPINE [Suspect]
     Active Substance: CLOZAPINE
     Dosage: 750 MG
     Dates: start: 20110825, end: 20111114
  8. CLOZAPINE [Suspect]
     Active Substance: CLOZAPINE
     Dosage: 750 MG
     Dates: start: 20111222, end: 20120111
  9. CLOZAPINE [Suspect]
     Active Substance: CLOZAPINE
     Dosage: 750 MG
     Dates: start: 20120209, end: 20120312
  10. CLOZAPINE [Suspect]
     Active Substance: CLOZAPINE
     Dosage: 800 MG
     Dates: start: 20120725, end: 20120925
  11. CLOZAPINE [Suspect]
     Active Substance: CLOZAPINE
     Dosage: 800 MG
     Dates: start: 20121224, end: 20130218
  12. CLOZAPINE [Suspect]
     Active Substance: CLOZAPINE
     Dosage: 800 MG
     Dates: start: 20131001, end: 20131028
  13. CLOZAPINE [Suspect]
     Active Substance: CLOZAPINE
     Dosage: 850 MG
     Dates: start: 20131126, end: 20131223
  14. CLOZAPINE [Suspect]
     Active Substance: CLOZAPINE
     Dosage: 850 MG
     Dates: start: 20140513, end: 20140706
  15. CLOZAPINE [Suspect]
     Active Substance: CLOZAPINE
     Dosage: 850 MG
     Dates: start: 20140902, end: 20140928
  16. CLOZAPINE [Suspect]
     Active Substance: CLOZAPINE
     Dosage: 850 MG
     Dates: start: 20141028, end: 20150119
  17. CLOZAPINE [Suspect]
     Active Substance: CLOZAPINE
     Dosage: 850 MG
     Dates: start: 20150804, end: 20160703
  18. CLOZAPINE [Suspect]
     Active Substance: CLOZAPINE
     Dosage: 850 MG
     Dates: start: 20160802, end: 20160925
  19. CLOZAPINE [Suspect]
     Active Substance: CLOZAPINE
     Dosage: 850 MG
     Dates: start: 20161025, end: 20180114
  20. CLOZAPINE [Suspect]
     Active Substance: CLOZAPINE
     Dosage: 850 MG
     Dates: start: 20180213, end: 20180625
  21. CLOZAPINE [Suspect]
     Active Substance: CLOZAPINE
     Dosage: 850 MG
     Dates: start: 20180725, end: 20181113
  22. CLOZAPINE [Suspect]
     Active Substance: CLOZAPINE
     Dosage: 650 MG
     Dates: start: 20181114, end: 20181211
  23. CLOZAPINE [Suspect]
     Active Substance: CLOZAPINE
     Dosage: 750 MG
     Dates: start: 20110602, end: 20110824
  24. CLOZAPINE [Suspect]
     Active Substance: CLOZAPINE
     Dosage: 750 MG
     Dates: start: 20120112, end: 20120208
  25. CLOZAPINE [Suspect]
     Active Substance: CLOZAPINE
     Dosage: 750 MG
     Dates: start: 20120313, end: 20120603
  26. CLOZAPINE [Suspect]
     Active Substance: CLOZAPINE
     Dosage: 800 MG
     Dates: start: 20120604, end: 20120724
  27. CLOZAPINE [Suspect]
     Active Substance: CLOZAPINE
     Dosage: 800 MG
     Dates: start: 20120926, end: 20121223
  28. CLOZAPINE [Suspect]
     Active Substance: CLOZAPINE
     Dosage: 800 MG
     Dates: start: 20130219, end: 20130610
  29. CLOZAPINE [Suspect]
     Active Substance: CLOZAPINE
     Dosage: 800 MG
     Dates: start: 20130709, end: 20130930
  30. CLOZAPINE [Suspect]
     Active Substance: CLOZAPINE
     Dosage: 800 MG
     Dates: start: 20131029, end: 20131125
  31. CLOZAPINE [Suspect]
     Active Substance: CLOZAPINE
     Dosage: 850 MG
     Dates: start: 20131224
  32. CLOZAPINE [Suspect]
     Active Substance: CLOZAPINE
     Dosage: 850 MG
     Dates: start: 20140218, end: 20140316
  33. CLOZAPINE [Suspect]
     Active Substance: CLOZAPINE
     Dosage: 850 MG
     Dates: start: 20140805, end: 20140901
  34. CLOZAPINE [Suspect]
     Active Substance: CLOZAPINE
     Dosage: 850 MG
     Dates: start: 20150120, end: 20150215
  35. CLOZAPINE [Suspect]
     Active Substance: CLOZAPINE
     Dosage: 850 MG
     Dates: start: 20150414, end: 20150608
  36. CLOZAPINE [Suspect]
     Active Substance: CLOZAPINE
     Dosage: 850 MG
     Dates: start: 20150707, end: 20150803
  37. CLOZAPINE [Suspect]
     Active Substance: CLOZAPINE
     Dosage: 850 MG
     Dates: start: 20181212, end: 20190401
  38. CLOZAPINE [Suspect]
     Active Substance: CLOZAPINE
     Dosage: 850 MG
     Dates: start: 20190501, end: 20190820
  39. CLOZAPINE [Suspect]
     Active Substance: CLOZAPINE
     Dosage: 850 MG
     Dates: start: 20190918, end: 20220329
  40. CLOZAPINE [Suspect]
     Active Substance: CLOZAPINE
     Dosage: 750 MG
     Dates: start: 20111115, end: 20111221
  41. CLOZAPINE [Suspect]
     Active Substance: CLOZAPINE
     Dosage: 850 MG
     Dates: start: 20130611, end: 20130708
  42. CLOZAPINE [Suspect]
     Active Substance: CLOZAPINE
     Dosage: 850 MG
     Dates: end: 20140217
  43. CLOZAPINE [Suspect]
     Active Substance: CLOZAPINE
     Dosage: 850 MG
     Dates: start: 20140317, end: 20140512
  44. CLOZAPINE [Suspect]
     Active Substance: CLOZAPINE
     Dosage: 850 MG
     Dates: start: 20140707, end: 20140804
  45. CLOZAPINE [Suspect]
     Active Substance: CLOZAPINE
     Dosage: 850 MG
     Dates: start: 20140929, end: 20141027
  46. CLOZAPINE [Suspect]
     Active Substance: CLOZAPINE
     Dosage: 850 MG
     Dates: start: 20150216, end: 20150413
  47. CLOZAPINE [Suspect]
     Active Substance: CLOZAPINE
     Dosage: 850 MG
     Dates: start: 20150609, end: 20150706
  48. CLOZAPINE [Suspect]
     Active Substance: CLOZAPINE
     Dosage: 850 MG
     Dates: start: 20160704, end: 20160801
  49. CLOZAPINE [Suspect]
     Active Substance: CLOZAPINE
     Dosage: 850 MG
     Dates: start: 20160926, end: 20161024
  50. CLOZAPINE [Suspect]
     Active Substance: CLOZAPINE
     Dosage: 850 MG
     Dates: start: 20180115, end: 20180212
  51. CLOZAPINE [Suspect]
     Active Substance: CLOZAPINE
     Dosage: 850 MG
     Dates: start: 20180626, end: 20180724
  52. CLOZAPINE [Suspect]
     Active Substance: CLOZAPINE
     Dosage: 850 MG
     Dates: start: 20190402, end: 20190430
  53. CLOZAPINE [Suspect]
     Active Substance: CLOZAPINE
     Dosage: 850 MG
     Dates: start: 20190821, end: 20190917
  54. CLOZAPINE [Suspect]
     Active Substance: CLOZAPINE
     Dosage: 850 MG
     Dates: start: 20220330, end: 20220816
  55. CLOZAPINE [Suspect]
     Active Substance: CLOZAPINE
     Dosage: 825 MG
     Dates: start: 20220817, end: 20220913
  56. CLOZAPINE [Suspect]
     Active Substance: CLOZAPINE
     Dosage: 800 MG
     Dates: start: 20220914, end: 20221011
  57. CLOZAPINE [Suspect]
     Active Substance: CLOZAPINE
     Dosage: 775 MG
     Dates: start: 20221012, end: 20221108
  58. CLOZAPINE [Suspect]
     Active Substance: CLOZAPINE
     Dosage: 750 MG
     Dates: start: 20221109, end: 20221206
  59. CLOZAPINE [Suspect]
     Active Substance: CLOZAPINE
     Dosage: 725 MG
     Dates: start: 20221207, end: 20230103
  60. CLOZAPINE [Suspect]
     Active Substance: CLOZAPINE
     Dosage: 700 MG
     Dates: start: 20230104, end: 20230131
  61. CLOZAPINE [Suspect]
     Active Substance: CLOZAPINE
     Dosage: 675 MG
     Dates: start: 20230201, end: 20230228
  62. CLOZAPINE [Suspect]
     Active Substance: CLOZAPINE
     Dosage: 650 MG
     Dates: start: 20230301, end: 20230328
  63. CLOZAPINE [Suspect]
     Active Substance: CLOZAPINE
     Dosage: 625 MG
     Dates: start: 20230329, end: 20230425
  64. CLOZAPINE [Suspect]
     Active Substance: CLOZAPINE
     Dosage: 600 MG
     Dates: start: 20230426, end: 20230523
  65. CLOZAPINE [Suspect]
     Active Substance: CLOZAPINE
     Dosage: 575 MG NOCTE (AT NIGHT)
     Route: 048
     Dates: start: 20230524
  66. OLANZAPINE [Concomitant]
     Active Substance: OLANZAPINE
     Dosage: 5 MG NOCTE (AT NIGHT) (UP-TITRATING)
     Route: 048
  67. BISOPROLOL [Concomitant]
     Active Substance: BISOPROLOL
     Dosage: 2.5 MG, 1X/DAY
     Route: 048
     Dates: start: 202208
  68. SPIRONOLACTONE [Concomitant]
     Active Substance: SPIRONOLACTONE
     Dosage: 12.5 MG, 1X/DAY
     Route: 048
     Dates: start: 202211
  69. ENTRESTO [Concomitant]
     Active Substance: SACUBITRIL\VALSARTAN
     Dosage: 24/26 MG, 2X/DAY
     Route: 048
     Dates: start: 202211
  70. EMPAGLIFLOZIN\METFORMIN HYDROCHLORIDE [Concomitant]
     Active Substance: EMPAGLIFLOZIN\METFORMIN HYDROCHLORIDE
     Dosage: 5 MG/1000 MG, 2X/DAY
  71. TRULICITY [Concomitant]
     Active Substance: DULAGLUTIDE
     Dosage: 1.5 MG/0.5 ML, 1X/WEEK
  72. PERINDOPRIL [Concomitant]
     Active Substance: PERINDOPRIL
     Dosage: UNK
     Dates: start: 202208, end: 202211

REACTIONS (6)
  - Hospitalisation [Recovered/Resolved]
  - Coronary artery disease [Not Recovered/Not Resolved]
  - Cardiac dysfunction [Not Recovered/Not Resolved]
  - Cardiac disorder [Not Recovered/Not Resolved]
  - Dilated cardiomyopathy [Not Recovered/Not Resolved]
  - Electrocardiogram QT prolonged [Not Recovered/Not Resolved]

NARRATIVE: CASE EVENT DATE: 20150401
